FAERS Safety Report 23977610 (Version 1)
Quarter: 2024Q2

REPORT INFORMATION
  Report Type: Spontaneous
  Country: US (occurrence: None)
  Receive Date: 20240614
  Receipt Date: 20240614
  Transmission Date: 20240715
  Serious: Yes (Hospitalization)
  Sender: FDA-Public Use
  Company Number: None

PATIENT
  Sex: Female
  Weight: 70 kg

DRUGS (1)
  1. CYCLOPHOSPHAMIDE [Suspect]
     Active Substance: CYCLOPHOSPHAMIDE
     Dates: start: 20240214

REACTIONS (5)
  - Muscular weakness [None]
  - Diarrhoea [None]
  - Blood creatinine increased [None]
  - Blood urea increased [None]
  - Dehydration [None]

NARRATIVE: CASE EVENT DATE: 20240608
